FAERS Safety Report 16252156 (Version 2)
Quarter: 2019Q2

REPORT INFORMATION
  Report Type: Spontaneous
  Country: US (occurrence: US)
  Receive Date: 20190429
  Receipt Date: 20190619
  Transmission Date: 20190711
  Serious: Yes (Other)
  Sender: FDA-Public Use
  Company Number: US-PFIZER INC-2019176828

PATIENT
  Age: 72 Year
  Sex: Female
  Weight: 107.95 kg

DRUGS (1)
  1. LYRICA [Suspect]
     Active Substance: PREGABALIN
     Indication: NEUROPATHY PERIPHERAL
     Dosage: 50 MG, 2X/DAY(SHE THINKS 50 MG, ONE TWICE A DAY, BY MOUTH)
     Route: 048

REACTIONS (2)
  - Chest pain [Unknown]
  - Thrombosis [Unknown]
